FAERS Safety Report 24573502 (Version 1)
Quarter: 2024Q4

REPORT INFORMATION
  Report Type: Spontaneous
  Country: US (occurrence: US)
  Receive Date: 20241102
  Receipt Date: 20241102
  Transmission Date: 20250114
  Serious: No
  Sender: LUPIN
  Company Number: US-LUPIN PHARMACEUTICALS INC.-2024-10529

PATIENT

DRUGS (1)
  1. ALBUTEROL SULFATE [Suspect]
     Active Substance: ALBUTEROL SULFATE
     Indication: Product used for unknown indication
     Dosage: UNK, PRN (: 2 P UFFS EVERY 4 HOURS AS NEEDED)

REACTIONS (4)
  - Device breakage [Unknown]
  - Device delivery system issue [Unknown]
  - Product preparation error [Unknown]
  - No adverse event [Unknown]
